FAERS Safety Report 8212588-3 (Version None)
Quarter: 2012Q1

REPORT INFORMATION
  Report Type: 
  Country: None (occurrence: None)
  Receive Date: 20120315
  Receipt Date: 20120313
  Transmission Date: 20120608
  Serious: No
  Sender: FDA-Public Use
  Company Number: US-PFIZER INC-2012047510

PATIENT
  Sex: Female
  Weight: 73.016 kg

DRUGS (9)
  1. XANAX [Suspect]
     Indication: AGORAPHOBIA
  2. PAXIL [Concomitant]
     Indication: DEPRESSION
     Dosage: 37.5 MG, 2X/DAY
  3. AMBIEN [Concomitant]
     Indication: SLEEP DISORDER
     Dosage: UNK, AS NEEDED
  4. KLONOPIN [Suspect]
     Dosage: 0.5 MG, 2X/DAY
  5. KLONOPIN [Suspect]
     Indication: AGORAPHOBIA
     Dosage: 2.5 MG, UNK
  6. XANAX [Suspect]
     Indication: ANXIETY
  7. KLONOPIN [Suspect]
     Indication: ANXIETY
     Dosage: 2 MG, UNK
  8. XANAX [Suspect]
     Indication: BIPOLAR I DISORDER
     Dosage: 0.5 MG, 3X/DAY
     Route: 048
  9. KLONOPIN [Suspect]
     Indication: PANIC ATTACK
     Dosage: 1 MG, 3X/DAY

REACTIONS (3)
  - MALAISE [None]
  - EMPHYSEMA [None]
  - PANIC ATTACK [None]
